FAERS Safety Report 7434149-6 (Version None)
Quarter: 2011Q2

REPORT INFORMATION
  Report Type: 
  Country: None (occurrence: None)
  Receive Date: 20110425
  Receipt Date: 20110415
  Transmission Date: 20111010
  Serious: Yes (Hospitalization, Other)
  Sender: FDA-Public Use
  Company Number: US-PFIZER INC-2010057706

PATIENT
  Sex: Female

DRUGS (14)
  1. PROZAC [Concomitant]
     Dosage: 20 MG, EVERY MORNING
  2. MORPHINE [Concomitant]
     Dosage: 5 MG, AS NEEDED
  3. CLARITIN [Concomitant]
     Dosage: 10 MG, EVERY MORNING
  4. SOMA [Concomitant]
     Dosage: 350 MG, 2X/DAY
  5. COLACE [Concomitant]
     Dosage: 250 MG, 2X/DAY
  6. DECADRON [Concomitant]
     Dosage: 1 MG, DAILY
     Dates: start: 20090410
  7. PREVACID [Concomitant]
     Dosage: 30 MG, EVERY MORNING
  8. DECADRON [Concomitant]
     Dosage: 2 MG, 2X/DAY
     Dates: start: 20090402
  9. DECADRON [Concomitant]
     Dosage: 0.5 MG, UNK
     Dates: start: 20090414, end: 20090415
  10. AMBIEN [Concomitant]
     Dosage: 5 MG, AS NEEDED
     Route: 048
  11. DILANTIN [Suspect]
     Indication: CONVULSION
     Dosage: 400 MG, 1X/DAY
     Route: 048
     Dates: start: 20090312, end: 20090422
  12. ALBUTEROL [Concomitant]
     Indication: WHEEZING
     Dosage: UNK
  13. XANAX [Concomitant]
     Dosage: 0.5 MG, AS NEEDED
  14. DECADRON [Concomitant]
     Dosage: 1 MG, 2X/DAY
     Dates: start: 20090406

REACTIONS (1)
  - STEVENS-JOHNSON SYNDROME [None]
